FAERS Safety Report 26193169 (Version 1)
Quarter: 2025Q4

REPORT INFORMATION
  Report Type: Spontaneous
  Country: US (occurrence: US)
  Receive Date: 20251223
  Receipt Date: 20251223
  Transmission Date: 20260118
  Serious: Yes (Hospitalization, Other)
  Sender: TEVA
  Company Number: US-TEVA-VS-3404241

PATIENT
  Age: 63 Year
  Sex: Female

DRUGS (6)
  1. FLUDROCORTISONE [Suspect]
     Active Substance: FLUDROCORTISONE
     Indication: Adrenal insufficiency
     Route: 065
  2. TIRZEPATIDE [Interacting]
     Active Substance: TIRZEPATIDE
     Indication: Type 2 diabetes mellitus
     Route: 065
  3. PREDNISONE [Suspect]
     Active Substance: PREDNISONE
     Indication: Adrenal insufficiency
     Route: 065
  4. HYDROCORTISONE [Interacting]
     Active Substance: HYDROCORTISONE
     Indication: Hormone replacement therapy
     Route: 048
  5. HYDROCORTISONE [Interacting]
     Active Substance: HYDROCORTISONE
     Indication: Hormone replacement therapy
     Dosage: IM HYDROCORTISONE
     Route: 065
  6. HYDROCORTISONE [Interacting]
     Active Substance: HYDROCORTISONE
     Indication: Hormone replacement therapy
     Dosage: IV HYDROCORTISONE
     Route: 065

REACTIONS (3)
  - Adrenal insufficiency [Recovering/Resolving]
  - Drug ineffective [Unknown]
  - Drug interaction [Unknown]
